FAERS Safety Report 10073224 (Version 1)
Quarter: 2014Q2

REPORT INFORMATION
  Report Type: Spontaneous
  Country: US (occurrence: US)
  Receive Date: 20140411
  Receipt Date: 20140411
  Transmission Date: 20141212
  Serious: Yes (Hospitalization)
  Sender: FDA-Public Use
  Company Number: US-GLAXOSMITHKLINE-A1068243A

PATIENT
  Age: 74 Year
  Sex: Female

DRUGS (7)
  1. ADVAIR [Suspect]
     Indication: CHRONIC OBSTRUCTIVE PULMONARY DISEASE
     Dosage: 1PUFF TWICE PER DAY
     Route: 055
  2. UNKNOWN MEDICATION [Concomitant]
  3. DIABETES MEDICATION [Concomitant]
  4. INSULIN [Concomitant]
  5. INFLUENZAE VACCINE [Concomitant]
  6. PNEUMONIA SHOT [Concomitant]
  7. ANTIDIARRHEAL [Concomitant]

REACTIONS (7)
  - Gallbladder perforation [Recovering/Resolving]
  - Cholecystectomy [Recovering/Resolving]
  - Diarrhoea [Recovering/Resolving]
  - Bronchitis [Recovering/Resolving]
  - Malaise [Recovering/Resolving]
  - Hypokinesia [Unknown]
  - Treatment noncompliance [Unknown]
